FAERS Safety Report 5710560-6 (Version None)
Quarter: 2008Q2

REPORT INFORMATION
  Report Type: 
  Country: None (occurrence: None)
  Receive Date: 20080415
  Receipt Date: 20080403
  Transmission Date: 20081010
  Serious: Yes (Other)
  Sender: FDA-Public Use
  Company Number: 233240J08USA

PATIENT
  Age: 55 Year
  Sex: Female
  Weight: 80.7403 kg

DRUGS (5)
  1. REBIF [Suspect]
     Indication: MULTIPLE SCLEROSIS
     Dosage: 44 MCG, 3 IN 1 WEEKS, SUBCUTANEOUS
     Route: 058
     Dates: start: 20060927
  2. UNSPECIFIED STEROIDS (ALL OTHER THERAPEUTIC PRODUCTS) [Suspect]
  3. GABAPENTIN [Concomitant]
  4. BENICAR [Concomitant]
  5. REQUIP [Concomitant]

REACTIONS (1)
  - TYPE 2 DIABETES MELLITUS [None]
